FAERS Safety Report 25170574 (Version 1)
Quarter: 2025Q2

REPORT INFORMATION
  Report Type: Spontaneous
  Country: RU (occurrence: RU)
  Receive Date: 20250408
  Receipt Date: 20250408
  Transmission Date: 20250716
  Serious: Yes (Other)
  Sender: NOVO NORDISK
  Company Number: None

PATIENT
  Age: 12 Year
  Sex: Female
  Weight: 50 kg

DRUGS (4)
  1. FIASP [Suspect]
     Active Substance: INSULIN ASPART
     Indication: Type 1 diabetes mellitus
     Dosage: 40 IU, QD
     Route: 058
     Dates: start: 20250228
  2. FIASP [Suspect]
     Active Substance: INSULIN ASPART
     Route: 058
     Dates: end: 20250325
  3. FIASP [Suspect]
     Active Substance: INSULIN ASPART
     Route: 058
  4. FIASP [Suspect]
     Active Substance: INSULIN ASPART
     Route: 058

REACTIONS (5)
  - Headache [Recovering/Resolving]
  - Somnolence [Recovering/Resolving]
  - Nausea [Recovering/Resolving]
  - Abdominal pain [Recovering/Resolving]
  - Hyperglycaemia [Recovering/Resolving]

NARRATIVE: CASE EVENT DATE: 20250228
